FAERS Safety Report 4341476-8 (Version None)
Quarter: 2004Q2

REPORT INFORMATION
  Report Type: 
  Country: None (occurrence: None)
  Receive Date: 20040415
  Receipt Date: 20040406
  Transmission Date: 20050107
  Serious: Yes (Other)
  Sender: FDA-Public Use
  Company Number: 2004-04-0459

PATIENT
  Age: 4 Year
  Sex: Male

DRUGS (1)
  1. NASONEX [Suspect]
     Dosage: 100 MCG QD NASAL SPRAY
     Route: 045
     Dates: start: 20040301

REACTIONS (2)
  - CONVULSION [None]
  - DISORIENTATION [None]
